FAERS Safety Report 13547935 (Version 1)
Quarter: 2017Q2

REPORT INFORMATION
  Report Type: Report from Study
  Country: JP (occurrence: JP)
  Receive Date: 20170516
  Receipt Date: 20170516
  Transmission Date: 20170830
  Serious: Yes (Other)
  Sender: FDA-Public Use
  Company Number: JP-ROCHE-1932692

PATIENT

DRUGS (7)
  1. CYCLOSPORINE A [Concomitant]
     Active Substance: CYCLOSPORINE
  2. PREDNISOLONE. [Concomitant]
     Active Substance: PREDNISOLONE
  3. MYCOPHENOLATE MOFETIL. [Concomitant]
     Active Substance: MYCOPHENOLATE MOFETIL
     Route: 065
  4. CYCLOPHOSPHAMIDE. [Concomitant]
     Active Substance: CYCLOPHOSPHAMIDE
  5. MIZORIBINE [Concomitant]
     Active Substance: MIZORIBINE
  6. RITUXIMAB [Suspect]
     Active Substance: RITUXIMAB
     Indication: NEPHROTIC SYNDROME
     Dosage: 375 MG/M2, MAXIMUM 500 MG
     Route: 042
  7. TACROLIMUS. [Concomitant]
     Active Substance: TACROLIMUS

REACTIONS (4)
  - Agranulocytosis [Recovered/Resolved]
  - Infusion related reaction [Unknown]
  - Off label use [Unknown]
  - Drug ineffective [Unknown]
